FAERS Safety Report 11192340 (Version 1)
Quarter: 2015Q2

REPORT INFORMATION
  Report Type: Spontaneous
  Country: GB (occurrence: GB)
  Receive Date: 20150616
  Receipt Date: 20150616
  Transmission Date: 20150821
  Serious: Yes (Disabling)
  Sender: FDA-Public Use
  Company Number: GB-WATSON-2015-11835

PATIENT
  Age: 89 Year
  Sex: Female
  Weight: 56.6 kg

DRUGS (5)
  1. MEMANTINE [Concomitant]
     Active Substance: MEMANTINE
     Indication: PRODUCT USED FOR UNKNOWN INDICATION
     Dosage: UNK
     Route: 065
     Dates: end: 20140617
  2. RISPERIDONE (UNKNOWN) [Suspect]
     Active Substance: RISPERIDONE
     Indication: PRODUCT USED FOR UNKNOWN INDICATION
     Dosage: 500 MCG BD, 500 MCG PRN
     Route: 048
     Dates: start: 20141103, end: 20141111
  3. RISPERIDONE (UNKNOWN) [Suspect]
     Active Substance: RISPERIDONE
     Dosage: 500 MCG NOCTE 500 MCG BD PRN
     Route: 048
     Dates: start: 20140822, end: 20141102
  4. RISPERIDONE (UNKNOWN) [Suspect]
     Active Substance: RISPERIDONE
     Dosage: 500 MCG NOCTE 250 MCG BD PRN
     Route: 048
     Dates: start: 20140811, end: 20141121
  5. RISPERIDONE (UNKNOWN) [Suspect]
     Active Substance: RISPERIDONE
     Dosage: 250 ?G OD 250 MCG PRN
     Route: 048
     Dates: start: 20140617, end: 20140810

REACTIONS (4)
  - Confusional state [Unknown]
  - Malaise [Unknown]
  - Oedema peripheral [Unknown]
  - Sedation [Recovered/Resolved]

NARRATIVE: CASE EVENT DATE: 20140617
